FAERS Safety Report 5267145-8 (Version None)
Quarter: 2007Q1

REPORT INFORMATION
  Report Type: 
  Country: None (occurrence: None)
  Receive Date: 20070316
  Receipt Date: 20070305
  Transmission Date: 20070707
  Serious: Yes (Hospitalization, Other)
  Sender: FDA-Public Use
  Company Number: AU-AVENTIS-200711919GDDC

PATIENT
  Age: 39 Year
  Sex: Female

DRUGS (3)
  1. FLAGYL [Suspect]
     Route: 048
     Dates: start: 20061207, end: 20061212
  2. FLAGYL [Suspect]
     Route: 048
  3. CIPRAMIL                           /00582602/ [Concomitant]
     Dosage: DOSE: UNK

REACTIONS (9)
  - CONFUSIONAL STATE [None]
  - CONVULSION [None]
  - COUGH [None]
  - HALLUCINATION [None]
  - IRRITABILITY [None]
  - PANIC ATTACK [None]
  - PARAESTHESIA ORAL [None]
  - TREMOR [None]
  - WHEEZING [None]
